FAERS Safety Report 6075394-4 (Version None)
Quarter: 2009Q1

REPORT INFORMATION
  Report Type: 
  Country: None (occurrence: None)
  Receive Date: 20090210
  Receipt Date: 20090210
  Transmission Date: 20090719
  Serious: Yes (Disabling, Other)
  Sender: FDA-Public Use
  Company Number: None

PATIENT
  Age: 30 Year
  Sex: Female
  Weight: 54.4316 kg

DRUGS (1)
  1. NEURONTIN [Suspect]
     Indication: TEMPOROMANDIBULAR JOINT SYNDROME
     Dosage: 600MG 4 PO
     Route: 048
     Dates: start: 20090119, end: 20090209

REACTIONS (12)
  - ALOPECIA [None]
  - AMNESIA [None]
  - CLUMSINESS [None]
  - CONFUSIONAL STATE [None]
  - DEPRESSION [None]
  - DYSURIA [None]
  - FEELING DRUNK [None]
  - INSOMNIA [None]
  - LETHARGY [None]
  - PSYCHOMOTOR HYPERACTIVITY [None]
  - SLEEP TERROR [None]
  - SOMNOLENCE [None]
